FAERS Safety Report 9324754 (Version 1)
Quarter: 2013Q2

REPORT INFORMATION
  Report Type: Spontaneous
  Country: US (occurrence: US)
  Receive Date: 20130603
  Receipt Date: 20130603
  Transmission Date: 20140414
  Serious: No
  Sender: FDA-Public Use
  Company Number: US-PFIZER INC-2013166120

PATIENT
  Age: 53 Year
  Sex: Female

DRUGS (4)
  1. PRISTIQ [Suspect]
     Indication: MAJOR DEPRESSION
     Dosage: 100 MG, 1X/DAY
     Route: 048
     Dates: start: 2011
  2. XANAX [Concomitant]
     Dosage: 0.5 MG, UNK
  3. ZOLOFT [Concomitant]
     Dosage: 100 MG, UNK
  4. AMBIEN [Concomitant]
     Dosage: 10 MG, UNK

REACTIONS (4)
  - Malaise [Unknown]
  - Dizziness [Unknown]
  - Nausea [Unknown]
  - Ill-defined disorder [Unknown]
